FAERS Safety Report 6336262-3 (Version None)
Quarter: 2009Q3

REPORT INFORMATION
  Report Type: 
  Country: None (occurrence: None)
  Receive Date: 20090901
  Receipt Date: 20090827
  Transmission Date: 20100115
  Serious: Yes (Other)
  Sender: FDA-Public Use
  Company Number: US-PFIZER INC-2009221931

PATIENT
  Sex: Female

DRUGS (1)
  1. AMLODIPINE BESYLATE [Suspect]
     Dosage: 10 MG, UNK

REACTIONS (5)
  - BURNING SENSATION [None]
  - DYSPHAGIA [None]
  - DYSPHONIA [None]
  - SCAR [None]
  - THROAT IRRITATION [None]
